FAERS Safety Report 12447660 (Version 3)
Quarter: 2016Q3

REPORT INFORMATION
  Report Type: Spontaneous
  Country: US (occurrence: US)
  Receive Date: 20160608
  Receipt Date: 20160720
  Transmission Date: 20161109
  Serious: Yes (Hospitalization, Other)
  Sender: FDA-Public Use
  Company Number: US-JAZZ-2016-US-010190

PATIENT
  Age: 54 Year
  Sex: Male

DRUGS (19)
  1. PRIALT [Suspect]
     Active Substance: ZICONOTIDE ACETATE
     Indication: SPINAL PAIN
     Dosage: UNK ?G, QH
     Route: 037
     Dates: start: 201511, end: 20160428
  2. STOOL SOFTENER [Concomitant]
     Active Substance: DOCUSATE CALCIUM
  3. IRON [Concomitant]
     Active Substance: IRON
     Dosage: 325 MG, UNK
  4. NITROGLYCERIN. [Concomitant]
     Active Substance: NITROGLYCERIN
  5. MS CONTIN [Concomitant]
     Active Substance: MORPHINE SULFATE
  6. PROBIOTIC ACIDOPHILUS [Concomitant]
     Active Substance: LACTOBACILLUS ACIDOPHILUS
  7. FLOMAX [Concomitant]
     Active Substance: TAMSULOSIN HYDROCHLORIDE
  8. AMLODIPINE [Concomitant]
     Active Substance: AMLODIPINE BESYLATE
     Indication: BLOOD PRESSURE ABNORMAL
  9. PRIALT [Suspect]
     Active Substance: ZICONOTIDE ACETATE
     Dosage: UNK ?G, QH
     Route: 037
     Dates: start: 201606
  10. ASCORBIC ACID. [Concomitant]
     Active Substance: ASCORBIC ACID
  11. ASPIRIN. [Concomitant]
     Active Substance: ASPIRIN
     Dosage: 325 MG, UNK
     Route: 048
  12. FIBER [Concomitant]
     Active Substance: PSYLLIUM HUSK
  13. OXYCODONE [Concomitant]
     Active Substance: OXYCODONE
     Dosage: UNK, PRN, Q 3 HRS.
  14. VALIUM [Concomitant]
     Active Substance: DIAZEPAM
     Dosage: 10 MG, UNK
  15. PRIALT [Suspect]
     Active Substance: ZICONOTIDE ACETATE
     Dosage: UNK ?G, QH
     Route: 037
     Dates: start: 20160428, end: 201606
  16. MULTI VITAMIN WITH FLUORIDE [Concomitant]
     Active Substance: .ALPHA.-TOCOPHEROL ACETATE, DL-\ASCORBIC ACID\CHOLECALCIFEROL\CYANOCOBALAMIN\FOLIC ACID\NIACINAMIDE\PYRIDOXINE HYDROCHLORIDE\RIBOFLAVIN\SODIUM ASCORBATE\SODIUM FLUORIDE\THIAMINE MONONITRATE\VITAMIN A ACETATE
  17. GABAPENTIN. [Concomitant]
     Active Substance: GABAPENTIN
     Dosage: 600 MG, BID
  18. PANTOPRAZOLE [Concomitant]
     Active Substance: PANTOPRAZOLE SODIUM
  19. FUROSEMIDE. [Concomitant]
     Active Substance: FUROSEMIDE
     Dosage: 20 MG, UNK

REACTIONS (9)
  - Hypersensitivity [Unknown]
  - Tongue movement disturbance [Unknown]
  - Anaphylactic shock [Unknown]
  - Condition aggravated [Not Recovered/Not Resolved]
  - Coronary artery occlusion [Unknown]
  - Atrial fibrillation [Not Recovered/Not Resolved]
  - Oral pain [Unknown]
  - Dysphagia [Not Recovered/Not Resolved]
  - Dry mouth [Unknown]

NARRATIVE: CASE EVENT DATE: 2016
